FAERS Safety Report 18969524 (Version 1)
Quarter: 2021Q1

REPORT INFORMATION
  Report Type: Spontaneous
  Country: US (occurrence: US)
  Receive Date: 20210304
  Receipt Date: 20210304
  Transmission Date: 20210420
  Serious: Yes (Other)
  Sender: FDA-Public Use
  Company Number: US-TEVA-2021-US-1885517

PATIENT
  Age: 51 Year
  Sex: Female
  Weight: 72.57 kg

DRUGS (5)
  1. IMITREX [Concomitant]
     Active Substance: SUMATRIPTAN SUCCINATE
     Dosage: 100 MG AS NEEDED
     Route: 048
  2. INDERAL [Concomitant]
     Active Substance: PROPRANOLOL HYDROCHLORIDE
     Dosage: 20 MILLIGRAM DAILY;
  3. ZOFRAN ODT 8 MG [Concomitant]
  4. VITAMIN D [Concomitant]
     Active Substance: VITAMIN D NOS
  5. AJOVY [Suspect]
     Active Substance: FREMANEZUMAB-VFRM
     Indication: MIGRAINE
     Dates: start: 20190325

REACTIONS (3)
  - Neuropathy peripheral [Recovered/Resolved]
  - Gait disturbance [Recovered/Resolved]
  - Pain in extremity [Recovered/Resolved]

NARRATIVE: CASE EVENT DATE: 201903
